FAERS Safety Report 9779089 (Version 1)
Quarter: 2013Q4

REPORT INFORMATION
  Report Type: Spontaneous
  Country: US (occurrence: US)
  Receive Date: 20131223
  Receipt Date: 20131223
  Transmission Date: 20140711
  Serious: Yes (Hospitalization)
  Sender: FDA-Public Use
  Company Number: US-ELI_LILLY_AND_COMPANY-US201312007463

PATIENT
  Age: 52 Year
  Sex: Female
  Weight: 92.06 kg

DRUGS (12)
  1. CYMBALTA [Suspect]
     Indication: DEPRESSION
     Dosage: UNK
     Route: 065
     Dates: start: 20130727
  2. HYDROCHLOROTHIAZIDE [Concomitant]
     Indication: SWELLING
     Dosage: UNK
     Dates: start: 20130621
  3. REGLAN [Concomitant]
     Indication: NAUSEA
     Dosage: UNK, PRN
  4. OMEPRAZOLE [Concomitant]
     Indication: GASTROOESOPHAGEAL REFLUX DISEASE
     Dosage: UNK
     Dates: start: 20130530
  5. PLAQUENIL                               /SCH/ [Concomitant]
     Indication: SYSTEMIC LUPUS ERYTHEMATOSUS
     Dosage: UNK
     Dates: start: 201304
  6. DIPHENOXYLATE [Concomitant]
     Indication: DIARRHOEA
     Dosage: UNK, PRN
     Dates: start: 20121009
  7. ASPIRIN [Concomitant]
     Indication: HYPERTENSION
     Dosage: UNK
     Dates: start: 20130819
  8. TRAMADOL [Concomitant]
     Indication: PAIN
     Dosage: UNK
     Dates: start: 2010
  9. CELLCEPT                           /01275102/ [Concomitant]
     Indication: SYSTEMIC LUPUS ERYTHEMATOSUS
     Dosage: UNK
     Dates: start: 20120910
  10. NIFEDIPINE [Concomitant]
     Indication: HYPERTENSION
     Dosage: UNK
     Dates: start: 2012
  11. XANAX [Concomitant]
     Indication: ANXIETY
     Dosage: UNK
     Dates: start: 200504
  12. LYRICA [Concomitant]
     Indication: FIBROMYALGIA
     Dosage: UNK
     Dates: start: 201109

REACTIONS (1)
  - Urinary tract infection [Recovered/Resolved]
